FAERS Safety Report 10556063 (Version 1)
Quarter: 2014Q4

REPORT INFORMATION
  Report Type: Spontaneous
  Country: CH (occurrence: CH)
  Receive Date: 20141030
  Receipt Date: 20141030
  Transmission Date: 20150529
  Serious: Yes (Hospitalization)
  Sender: FDA-Public Use
  Company Number: PHHY2014CH139597

PATIENT
  Sex: Female

DRUGS (1)
  1. LADONNA [Suspect]
     Active Substance: CHLORMADINONE ACETATE\ETHINYL ESTRADIOL

REACTIONS (1)
  - Optic nerve disorder [Unknown]
